FAERS Safety Report 8044720-9 (Version None)
Quarter: 2012Q1

REPORT INFORMATION
  Report Type: 
  Country: None (occurrence: None)
  Receive Date: 20120113
  Receipt Date: 20120105
  Transmission Date: 20120608
  Serious: Yes (Other)
  Sender: FDA-Public Use
  Company Number: BE-PFIZER INC-2012007249

PATIENT
  Age: 72 Year
  Sex: Male

DRUGS (6)
  1. ATACAND [Concomitant]
  2. ASPIRIN [Concomitant]
  3. NEBIVOLOL [Concomitant]
  4. LESCOL [Concomitant]
  5. AMIODARONE HCL [Suspect]
     Indication: PALPITATIONS
     Dosage: 100 MG, DAILY
     Route: 048
     Dates: end: 20110901
  6. ALLOPURINOL [Concomitant]

REACTIONS (4)
  - LACRIMATION INCREASED [None]
  - APHONIA [None]
  - HYPERTHYROIDISM [None]
  - THROAT IRRITATION [None]
